FAERS Safety Report 7565590-9 (Version None)
Quarter: 2011Q2

REPORT INFORMATION
  Report Type: 
  Country: None (occurrence: None)
  Receive Date: 20110615
  Receipt Date: 20110607
  Transmission Date: 20111010
  Serious: Yes (Death, Hospitalization)
  Sender: FDA-Public Use
  Company Number: 2011071474

PATIENT
  Age: 72 Year
  Sex: Male

DRUGS (6)
  1. SPIRIVA [Concomitant]
  2. DILTIAZEM [Concomitant]
  3. DALTEPARIN SODIUM [Suspect]
     Indication: LUNG NEOPLASM MALIGNANT
     Dosage: 75
     Dates: start: 20110316, end: 20110328
  4. CODEINE PHOSPHATE AND ACETAMINOPHEN [Concomitant]
  5. DIGOXIN [Concomitant]
  6. AMOXICILLIN [Concomitant]

REACTIONS (3)
  - PNEUMONIA [None]
  - GENERAL PHYSICAL HEALTH DETERIORATION [None]
  - DYSPNOEA [None]
